FAERS Safety Report 13390692 (Version 1)
Quarter: 2017Q1

REPORT INFORMATION
  Report Type: Spontaneous
  Country: AR (occurrence: US)
  Receive Date: 20170328
  Receipt Date: 20170328
  Transmission Date: 20170429
  Serious: Yes (Disabling, Other)
  Sender: FDA-Public Use
  Company Number: None

PATIENT
  Age: 50 Year
  Sex: Female
  Weight: 75 kg

DRUGS (1)
  1. ZYPREXA [Suspect]
     Active Substance: OLANZAPINE
     Indication: NERVOUSNESS
     Dosage: ?          QUANTITY:1 TABLET(S);?
     Route: 048

REACTIONS (8)
  - Headache [None]
  - Breast enlargement [None]
  - Drug ineffective [None]
  - Insomnia [None]
  - Delusional perception [None]
  - Obesity [None]
  - Tremor [None]
  - Muscle rigidity [None]

NARRATIVE: CASE EVENT DATE: 20111210
